FAERS Safety Report 6258359-9 (Version None)
Quarter: 2009Q3

REPORT INFORMATION
  Report Type: 
  Country: None (occurrence: None)
  Receive Date: 20090707
  Receipt Date: 20090625
  Transmission Date: 20100115
  Serious: No
  Sender: FDA-Public Use
  Company Number: JP-ELI_LILLY_AND_COMPANY-JP200906000301

PATIENT
  Sex: Male

DRUGS (8)
  1. ZYPREXA [Suspect]
     Indication: BIPOLAR DISORDER
     Dosage: 5 MG, DAILY (1/D)
     Route: 048
     Dates: start: 20090415, end: 20090521
  2. ZYPREXA [Suspect]
     Dosage: 5 MG, DAILY (1/D)
     Route: 048
     Dates: start: 20090604, end: 20090609
  3. BEZATOL - SLOW RELEASE [Concomitant]
     Indication: BLOOD TRIGLYCERIDES INCREASED
     Dosage: 200 MG, 2/D
     Route: 048
     Dates: start: 20090423, end: 20090502
  4. LIMAS [Concomitant]
     Dosage: 100MG IN THE MORNING AND 200 MG IN THE NIGHT, 2/D
     Route: 048
  5. TEGRETOL [Concomitant]
     Dosage: 400 MG, DAILY (1/D)
     Route: 048
  6. MYSLEE [Concomitant]
     Dosage: 10 MG, DAILY (1/D)
     Route: 048
  7. GOODMIN [Concomitant]
     Dosage: 0.25 MG, DAILY (1/D)
     Route: 048
  8. SALIGREN [Concomitant]
     Dosage: 30 MG, DAILY (1/D)
     Route: 048

REACTIONS (1)
  - MYALGIA [None]
